FAERS Safety Report 8058159-3 (Version None)
Quarter: 2012Q1

REPORT INFORMATION
  Report Type: 
  Country: None (occurrence: None)
  Receive Date: 20120120
  Receipt Date: 20120106
  Transmission Date: 20120608
  Serious: Yes (Hospitalization, Other)
  Sender: FDA-Public Use
  Company Number: CA-JNJFOC-20110800465

PATIENT
  Sex: Male
  Weight: 90 kg

DRUGS (11)
  1. ACTONEL [Concomitant]
  2. REMICADE [Suspect]
     Indication: CROHN'S DISEASE
     Route: 042
     Dates: start: 20110607, end: 20110607
  3. GLUCOSAMINE [Concomitant]
     Route: 065
  4. CALCIUM CARBONATE [Concomitant]
  5. BISMUTH [Concomitant]
  6. IMURAN [Concomitant]
  7. ALL OTHER THERAPEUTICS [Concomitant]
     Route: 065
  8. CELEBREX [Concomitant]
  9. VITAMIN [Concomitant]
  10. FLOMAX [Concomitant]
  11. PREDNISONE TAB [Concomitant]

REACTIONS (3)
  - LUNG DISORDER [None]
  - RENAL COLIC [None]
  - NEPHROLITHIASIS [None]
